FAERS Safety Report 6644593-2 (Version None)
Quarter: 2010Q1

REPORT INFORMATION
  Report Type: 
  Country: None (occurrence: None)
  Receive Date: 20100322
  Receipt Date: 20100309
  Transmission Date: 20100710
  Serious: Yes (Other)
  Sender: FDA-Public Use
  Company Number: GB-ELI_LILLY_AND_COMPANY-GB201003002664

PATIENT
  Sex: Male

DRUGS (3)
  1. HUMULIN R [Suspect]
     Dosage: 50 IU, DAILY (20 MORNING, 10 LUNCH AND 20 EVENING)
     Route: 065
  2. HUMULIN R [Suspect]
     Dosage: 28 IU, DAILY (10 MORNING, 6 LUNCH, 12 EVENING)
     Route: 065
  3. LANTUS [Concomitant]

REACTIONS (2)
  - HYPOGLYCAEMIA [None]
  - LOSS OF CONSCIOUSNESS [None]
